FAERS Safety Report 21796349 (Version 1)
Quarter: 2022Q4

REPORT INFORMATION
  Report Type: Report from Study
  Country: CO (occurrence: CO)
  Receive Date: 20221229
  Receipt Date: 20221229
  Transmission Date: 20230112
  Serious: Yes (Other)
  Sender: FDA-Public Use
  Company Number: CO-ALLERGAN-2242138US

PATIENT
  Sex: Female
  Weight: 57 kg

DRUGS (2)
  1. BOTULINUM TOXIN TYPE A [Suspect]
     Active Substance: BOTULINUM TOXIN TYPE A
     Indication: Facial spasm
     Dosage: 100 UNITS, SINGLE
     Route: 030
     Dates: start: 20220906, end: 20220906
  2. BOTULINUM TOXIN TYPE A [Suspect]
     Active Substance: BOTULINUM TOXIN TYPE A
     Dosage: 100 UNITS, SINGLE
     Route: 030
     Dates: start: 20200211, end: 20200211

REACTIONS (4)
  - Condition aggravated [Recovered/Resolved]
  - Visual impairment [Recovered/Resolved]
  - Eyelid ptosis [Recovered/Resolved]
  - Thyroid disorder [Unknown]
